FAERS Safety Report 9105703 (Version 2)
Quarter: 2014Q4

REPORT INFORMATION
  Report Type: Spontaneous
  Country: CA (occurrence: CA)
  Receive Date: 20130221
  Receipt Date: 20141118
  Transmission Date: 20150529
  Serious: Yes (Hospitalization, Disabling, Other)
  Sender: FDA-Public Use
  Company Number: CA-GLAXOSMITHKLINE-A1013124A

PATIENT
  Age: 38 Year
  Sex: Female

DRUGS (2)
  1. WEIGHT LOSS MEDICATION [Concomitant]
  2. ZYBAN [Suspect]
     Active Substance: BUPROPION HYDROCHLORIDE
     Indication: SMOKING CESSATION THERAPY
     Dosage: 150 MG, 1D
     Route: 048
     Dates: start: 20100424, end: 20111005

REACTIONS (6)
  - Cardiovascular disorder [Unknown]
  - Intraventricular haemorrhage [Unknown]
  - Cerebral haematoma [Unknown]
  - Cerebral haemorrhage [Not Recovered/Not Resolved]
  - Hydrocephalus [Unknown]
  - Seizure [Unknown]

NARRATIVE: CASE EVENT DATE: 20100824
